FAERS Safety Report 8461315-3 (Version None)
Quarter: 2012Q2

REPORT INFORMATION
  Report Type: 
  Country: None (occurrence: None)
  Receive Date: 20120625
  Receipt Date: 20120615
  Transmission Date: 20120825
  Serious: Yes (Hospitalization)
  Sender: FDA-Public Use
  Company Number: DE-JNJFOC-20120308371

PATIENT
  Sex: Female
  Weight: 67.3 kg

DRUGS (8)
  1. PREDNISONE TAB [Concomitant]
     Route: 048
  2. GOLIMUMAB [Suspect]
     Route: 058
     Dates: start: 20110502
  3. ESOMEPRAZOLE [Concomitant]
     Route: 048
     Dates: start: 20110502
  4. FOLIC ACID [Concomitant]
     Route: 048
  5. METHOTREXATE [Suspect]
     Indication: JUVENILE ARTHRITIS
     Route: 048
     Dates: start: 20101215
  6. DICLOFENAC SODIUM [Concomitant]
     Route: 048
  7. ACETAMINOPHEN [Concomitant]
     Route: 048
     Dates: start: 20120202
  8. GOLIMUMAB [Suspect]
     Indication: JUVENILE ARTHRITIS
     Route: 058
     Dates: start: 20120309

REACTIONS (2)
  - UPPER RESPIRATORY TRACT INFECTION [None]
  - JUVENILE ARTHRITIS [None]
